FAERS Safety Report 5760386-2 (Version None)
Quarter: 2008Q2

REPORT INFORMATION
  Report Type: 
  Country: None (occurrence: None)
  Receive Date: 20080602
  Receipt Date: 20080522
  Transmission Date: 20081010
  Serious: Yes (Hospitalization)
  Sender: FDA-Public Use
  Company Number: GXKR2007GB01232

PATIENT
  Age: 54 Year
  Sex: Female
  Weight: 55 kg

DRUGS (5)
  1. WARFARIN SODIUM [Suspect]
     Indication: PULMONARY HYPERTENSION
     Dosage: 2 MG
     Dates: start: 20061226, end: 20061229
  2. SITAXSENTAN (SITAXENTAN) [Suspect]
     Indication: PULMONARY HYPERTENSION
     Dosage: 100 MG, QD, ORAL
     Route: 048
     Dates: start: 20061226, end: 20061227
  3. PRVASTATIN (PRAVASTATIN) [Concomitant]
  4. SELENIUM [Concomitant]
  5. VITAMIN B [Concomitant]

REACTIONS (2)
  - HAEMOPTYSIS [None]
  - MYOCARDIAL INFARCTION [None]
